FAERS Safety Report 8285123-1 (Version None)
Quarter: 2012Q2

REPORT INFORMATION
  Report Type: 
  Country: None (occurrence: None)
  Receive Date: 20120413
  Receipt Date: 20110517
  Transmission Date: 20120825
  Serious: No
  Sender: FDA-Public Use
  Company Number: US-ASTRAZENECA-2011SE30861

PATIENT
  Age: 35 Year
  Sex: Female

DRUGS (11)
  1. SEROQUEL [Suspect]
     Route: 048
  2. LAMOTRGINE [Concomitant]
     Route: 048
  3. LAMOTRGINE [Concomitant]
     Route: 048
  4. LAMOTRGINE [Concomitant]
     Route: 048
  5. LAMOTRGINE [Concomitant]
     Route: 048
  6. ALENDRONATE SODIUM [Concomitant]
     Route: 048
  7. SEROQUEL [Suspect]
     Route: 048
  8. SEROQUEL [Suspect]
     Route: 048
  9. LAMOTRGINE [Concomitant]
     Route: 048
  10. MELATONIN [Concomitant]
  11. NEXIUM [Suspect]
     Route: 048

REACTIONS (4)
  - DEPRESSED MOOD [None]
  - INSOMNIA [None]
  - BIPOLAR II DISORDER [None]
  - LOGORRHOEA [None]
